FAERS Safety Report 7231881-4 (Version None)
Quarter: 2011Q1

REPORT INFORMATION
  Report Type: 
  Country: None (occurrence: None)
  Receive Date: 20110118
  Receipt Date: 20110107
  Transmission Date: 20110831
  Serious: Yes (Other)
  Sender: FDA-Public Use
  Company Number: JP-AMGEN-KDC442029

PATIENT

DRUGS (12)
  1. PANITUMUMAB [Suspect]
     Indication: COLORECTAL CANCER
     Dosage: 6 MG/KG, Q2WK
     Route: 041
     Dates: start: 20100916, end: 20100916
  2. FLUOROURACIL [Suspect]
     Indication: COLORECTAL CANCER
     Route: 040
     Dates: start: 20100916
  3. DECADRON [Concomitant]
     Route: 042
  4. CORTICOSTEROIDS [Concomitant]
     Indication: PROPHYLAXIS
     Route: 065
  5. TOPOTECAN [Suspect]
     Indication: COLORECTAL CANCER
     Route: 041
     Dates: start: 20100916
  6. ALOXI [Concomitant]
     Route: 042
  7. POLARAMINE [Concomitant]
     Route: 042
  8. ANTIHISTAMINES [Concomitant]
     Indication: PROPHYLAXIS
     Route: 065
  9. PANITUMUMAB [Suspect]
     Dosage: 4.8 MG/KG, Q2WK
     Route: 041
     Dates: start: 20101028
  10. CALCIUM LEVOFOLINATE [Concomitant]
     Indication: COLORECTAL CANCER
     Dosage: 200 MG/M2, Q2WK
     Route: 041
     Dates: start: 20100916
  11. MINOMYCIN [Concomitant]
     Route: 048
  12. FLUOROURACIL [Suspect]
     Route: 041
     Dates: start: 20100916

REACTIONS (2)
  - GLOSSODYNIA [None]
  - STOMATITIS [None]
